FAERS Safety Report 7465417-X (Version None)
Quarter: 2011Q2

REPORT INFORMATION
  Report Type: 
  Country: None (occurrence: None)
  Receive Date: 20110509
  Receipt Date: 20110106
  Transmission Date: 20111010
  Serious: No
  Sender: FDA-Public Use
  Company Number: US-BAUSCH-2011BL000103

PATIENT
  Age: 12 Year
  Sex: Female

DRUGS (2)
  1. ZYLET [Suspect]
     Indication: CORNEAL INFILTRATES
     Route: 047
  2. LOTEMAX [Suspect]
     Indication: CORNEAL INFILTRATES
     Route: 047

REACTIONS (1)
  - REBOUND EFFECT [None]
